FAERS Safety Report 6620448-4 (Version None)
Quarter: 2010Q1

REPORT INFORMATION
  Report Type: 
  Country: None (occurrence: None)
  Receive Date: 20100309
  Receipt Date: 20100225
  Transmission Date: 20100710
  Serious: Yes (Other)
  Sender: FDA-Public Use
  Company Number: DE-ELI_LILLY_AND_COMPANY-DE201003001973

PATIENT
  Sex: Male

DRUGS (7)
  1. BYETTA [Suspect]
     Indication: TYPE 2 DIABETES MELLITUS
     Dosage: 10 UG, UNK
     Route: 058
     Dates: start: 20091111
  2. DIOVAN [Concomitant]
  3. RAMIPRIL [Concomitant]
  4. METOPROLOL [Concomitant]
  5. TORASEMIDE [Concomitant]
  6. ASPIRIN [Concomitant]
  7. METFORMIN HYDROCHLORIDE [Concomitant]

REACTIONS (2)
  - ATRIAL FIBRILLATION [None]
  - BLOOD GLUCOSE ABNORMAL [None]
